FAERS Safety Report 8346870-6 (Version None)
Quarter: 2012Q1

REPORT INFORMATION
  Report Type: 
  Country: None (occurrence: None)
  Receive Date: 20120315
  Receipt Date: 20110516
  Transmission Date: 20120608
  Serious: No
  Sender: FDA-Public Use
  Company Number: PHHY2011US36738

PATIENT
  Age: 47 Year
  Sex: Female
  Weight: 71.7 kg

DRUGS (2)
  1. GILENYA [Suspect]
     Indication: MULTIPLE SCLEROSIS
     Dosage: 0.5 MG, DAILY, ORAL
     Route: 048
  2. ESTRADIOL [Concomitant]

REACTIONS (3)
  - ASTHENIA [None]
  - SENSATION OF HEAVINESS [None]
  - PAIN IN EXTREMITY [None]
